FAERS Safety Report 9913147 (Version 1)
Quarter: 2014Q1

REPORT INFORMATION
  Report Type: Spontaneous
  Country: US (occurrence: None)
  Receive Date: 20140212
  Receipt Date: 20140212
  Transmission Date: 20141002
  Serious: Yes (Hospitalization)
  Sender: FDA-Public Use
  Company Number: FK201400392

PATIENT
  Age: 38 Year
  Sex: Male

DRUGS (2)
  1. CISPLATIN [Suspect]
     Indication: LUNG ADENOCARCINOMA STAGE IV
     Dosage: ON DAY 1 OF A 3-WEEKLY CYCLE
  2. PEMETREXED [Suspect]
     Indication: LUNG ADENOCARCINOMA STAGE IV
     Dosage: ON DAY 1 OF A 3-WEEKLY SYCLE

REACTIONS (2)
  - Tuberculous pleurisy [None]
  - Pleural effusion [None]
